FAERS Safety Report 5216094-X (Version None)
Quarter: 2007Q1

REPORT INFORMATION
  Report Type: 
  Country: None (occurrence: None)
  Receive Date: 20070123
  Receipt Date: 20070109
  Transmission Date: 20070707
  Serious: Yes (Hospitalization, Other)
  Sender: FDA-Public Use
  Company Number: US-ELI_LILLY_AND_COMPANY-US200701001655

PATIENT
  Age: 40 Year
  Sex: Female

DRUGS (1)
  1. PROZAC [Suspect]
     Indication: ANXIETY

REACTIONS (7)
  - ABNORMAL BEHAVIOUR [None]
  - BLOOD ALCOHOL INCREASED [None]
  - CARDIAC PERFORATION [None]
  - HEART VALVE INSUFFICIENCY [None]
  - PHYSICAL ASSAULT [None]
  - PSYCHIATRIC SYMPTOM [None]
  - PULMONARY ARTERY ANEURYSM [None]
